FAERS Safety Report 18812027 (Version 7)
Quarter: 2021Q1

REPORT INFORMATION
  Report Type: Report from Study
  Country: AU (occurrence: NZ)
  Receive Date: 20210129
  Receipt Date: 20210308
  Transmission Date: 20210419
  Serious: Yes (Other)
  Sender: FDA-Public Use
  Company Number: AU-BIOGEN-2021BI00973818

PATIENT
  Age: 43 Year
  Sex: Female

DRUGS (4)
  1. TECFIDERA [Suspect]
     Active Substance: DIMETHYL FUMARATE
     Route: 048
     Dates: start: 20210118
  2. AMITRIPTYLINE [Concomitant]
     Active Substance: AMITRIPTYLINE
     Indication: PAIN
     Route: 065
  3. TECFIDERA [Suspect]
     Active Substance: DIMETHYL FUMARATE
     Dosage: MAINTENANCE DOSE
     Route: 048
     Dates: start: 20200718
  4. TECFIDERA [Suspect]
     Active Substance: DIMETHYL FUMARATE
     Indication: MULTIPLE SCLEROSIS
     Dosage: MAINTENANCE DOSE
     Route: 048
     Dates: start: 20200718, end: 20210116

REACTIONS (17)
  - Vision blurred [Recovered/Resolved]
  - Gait disturbance [Not Recovered/Not Resolved]
  - Depressed mood [Not Recovered/Not Resolved]
  - Flushing [Not Recovered/Not Resolved]
  - Hypoaesthesia [Recovered/Resolved]
  - Bacterial vulvovaginitis [Not Recovered/Not Resolved]
  - Pain in extremity [Not Recovered/Not Resolved]
  - Sensory disturbance [Not Recovered/Not Resolved]
  - Suicidal ideation [Not Recovered/Not Resolved]
  - Back pain [Not Recovered/Not Resolved]
  - Pruritus [Recovered/Resolved]
  - Muscular weakness [Not Recovered/Not Resolved]
  - Morton^s neuralgia [Not Recovered/Not Resolved]
  - Frustration tolerance decreased [Not Recovered/Not Resolved]
  - Candida infection [Not Recovered/Not Resolved]
  - Neuralgia [Not Recovered/Not Resolved]
  - Formication [Not Recovered/Not Resolved]

NARRATIVE: CASE EVENT DATE: 20201015
